FAERS Safety Report 21212727 (Version 1)
Quarter: 2022Q3

REPORT INFORMATION
  Report Type: Spontaneous
  Country: US (occurrence: None)
  Receive Date: 20220813
  Receipt Date: 20220813
  Transmission Date: 20221027
  Serious: Yes (Hospitalization)
  Sender: FDA-Public Use
  Company Number: None

PATIENT
  Sex: Male

DRUGS (1)
  1. TOBRAMYCIN [Suspect]
     Active Substance: TOBRAMYCIN
     Indication: Lung transplant
     Dosage: 300 MG/5ML??INHAL 5 ML VIA NEBULIZER TWICE DAILY CONTINOUSLY PRE-TREAT WITH DUONEB? ?
     Route: 055

REACTIONS (1)
  - Hospitalisation [None]
